FAERS Safety Report 9611864 (Version 2)
Quarter: 2013Q4

REPORT INFORMATION
  Report Type: Spontaneous
  Country: US (occurrence: US)
  Receive Date: 20131010
  Receipt Date: 20131112
  Transmission Date: 20140711
  Serious: No
  Sender: FDA-Public Use
  Company Number: US-009507513-1310USA003282

PATIENT
  Age: 40 Year
  Sex: Female

DRUGS (2)
  1. SAPHRIS [Suspect]
     Indication: BIPOLAR DISORDER
     Dosage: TAKEN AT NIGHT, RAPID DISSOLVE BCF
     Route: 060
     Dates: start: 2012, end: 201309
  2. SAPHRIS [Suspect]
     Dosage: TAKEN AT NIGHT; RAPID DISSOLVE BCF
     Route: 060
     Dates: start: 20131002

REACTIONS (4)
  - Somnolence [Unknown]
  - Tardive dyskinesia [Recovered/Resolved]
  - Dyskinesia [Recovered/Resolved]
  - Inappropriate schedule of drug administration [Unknown]
